FAERS Safety Report 5391585-X (Version None)
Quarter: 2007Q3

REPORT INFORMATION
  Report Type: 
  Country: None (occurrence: None)
  Receive Date: 20070717
  Receipt Date: 20070702
  Transmission Date: 20080115
  Serious: Yes (Hospitalization, Other)
  Sender: FDA-Public Use
  Company Number: 100#08#2007-02437

PATIENT
  Age: 54 Year
  Sex: Male

DRUGS (7)
  1. DIAZEPAM [Suspect]
     Indication: MAJOR DEPRESSION
     Dosage: CUMULATIVE DOSE 325 MG
  2. MOCLOBEMIDE (MOCLOBEMID) (MOCLOBEMID) [Suspect]
     Indication: MAJOR DEPRESSION
     Dosage: CUMULATIVE DOSE 6750MG
  3. RISPERIDONE [Suspect]
     Indication: MAJOR DEPRESSION
     Dosage: CUMULATIVO DOSE 176 MG
  4. MAPROTILINE [Suspect]
     Indication: MAJOR DEPRESSION
     Dosage: CUMULATIVE DOSE 900MG ; INTRAVENOUS (NOT OTHERWISE SPECIFIED)
  5. MIRTAZAPINE [Suspect]
     Indication: MAJOR DEPRESSION
     Dosage: CUMULATIVE DOSE 1100MG
  6. TILIDINE ( TILIDINE ) (TILIDINE) [Suspect]
     Indication: MAJOR DEPRESSION
     Dosage: CUMULATIVE DOSE 1400MG
  7. PERAZINE ( PERAZINE ) (PERAZINE) [Suspect]
     Indication: MAJOR DEPRESSION
     Dosage: 2 CUMULATIVE DOSE 1800MG

REACTIONS (7)
  - AMNESIA [None]
  - COGNITIVE DISORDER [None]
  - CONFUSIONAL STATE [None]
  - CSF PROTEIN INCREASED [None]
  - DELIRIUM [None]
  - DRUG TOXICITY [None]
  - MEMORY IMPAIRMENT [None]
